FAERS Safety Report 21948408 (Version 1)
Quarter: 2023Q1

REPORT INFORMATION
  Report Type: Report from Study
  Country: US (occurrence: US)
  Receive Date: 20230203
  Receipt Date: 20230203
  Transmission Date: 20230417
  Serious: Yes (Hospitalization)
  Sender: FDA-Public Use
  Company Number: US-TAKEDA-US202016215

PATIENT
  Sex: Female
  Weight: 136 kg

DRUGS (7)
  1. HUMAN IMMUNOGLOBULIN G [Suspect]
     Active Substance: HUMAN IMMUNOGLOBULIN G
     Indication: Follicular lymphoma stage I
     Dosage: 35 GRAM, Q4WEEKS
     Route: 042
  2. HUMAN IMMUNOGLOBULIN G [Suspect]
     Active Substance: HUMAN IMMUNOGLOBULIN G
     Indication: Non-Hodgkin^s lymphoma
  3. ELIQUIS [Concomitant]
     Active Substance: APIXABAN
  4. OMEPRAZOLE [Concomitant]
     Active Substance: OMEPRAZOLE
  5. LORATADINE [Concomitant]
     Active Substance: LORATADINE
  6. METOPROLOL [Concomitant]
     Active Substance: METOPROLOL
  7. FAMOTIDINE [Concomitant]
     Active Substance: FAMOTIDINE
     Dosage: UNK
     Route: 065

REACTIONS (6)
  - Full blood count decreased [Unknown]
  - Peripheral swelling [Unknown]
  - Fluid retention [Unknown]
  - Abdominal distension [Unknown]
  - Inability to afford medication [Unknown]
  - Intentional product use issue [Unknown]
